FAERS Safety Report 13612452 (Version 2)
Quarter: 2017Q2

REPORT INFORMATION
  Report Type: Report from Study
  Country: US (occurrence: US)
  Receive Date: 20170605
  Receipt Date: 20170620
  Transmission Date: 20170830
  Serious: Yes (Hospitalization, Other)
  Sender: FDA-Public Use
  Company Number: US-GILEAD-2017-0274897

PATIENT
  Sex: Male
  Weight: 81.63 kg

DRUGS (8)
  1. CITRACAL + D                       /01438101/ [Concomitant]
     Dosage: 1 DF, TID
     Route: 048
  2. VALCYTE [Concomitant]
     Active Substance: VALGANCICLOVIR HYDROCHLORIDE
  3. NYSTATIN. [Concomitant]
     Active Substance: NYSTATIN
     Indication: ANTIFUNGAL TREATMENT
  4. EVEROLIMUS [Concomitant]
     Active Substance: EVEROLIMUS
     Indication: IMMUNOSUPPRESSION
  5. TACRO [Concomitant]
     Active Substance: TACROLIMUS
  6. LEDIPASVIR/SOFOSBUVIR [Suspect]
     Active Substance: LEDIPASVIR\SOFOSBUVIR
     Indication: HEPATITIS C
     Dosage: 1 DF, QD
     Route: 048
     Dates: start: 20170411
  7. PREDNISONE. [Concomitant]
     Active Substance: PREDNISONE
     Indication: IMMUNOSUPPRESSION
  8. FERROUS SULFATE. [Concomitant]
     Active Substance: FERROUS SULFATE
     Indication: ANAEMIA

REACTIONS (1)
  - Liver transplant rejection [Not Recovered/Not Resolved]

NARRATIVE: CASE EVENT DATE: 20170503
